FAERS Safety Report 4688279-2 (Version None)
Quarter: 2005Q2

REPORT INFORMATION
  Report Type: 
  Country: None (occurrence: None)
  Receive Date: 20050609
  Receipt Date: 20050527
  Transmission Date: 20051028
  Serious: Yes (Death)
  Sender: FDA-Public Use
  Company Number: 2005080909

PATIENT
  Age: 76 Year
  Sex: Male

DRUGS (1)
  1. MINIDIAB (GLIPIZIDE) [Suspect]
     Indication: DIABETES MELLITUS
     Dosage: 5 MG, ORAL
     Route: 048
     Dates: start: 20050501

REACTIONS (3)
  - CEREBROVASCULAR ACCIDENT [None]
  - COMA [None]
  - HYPOGLYCAEMIA [None]
